FAERS Safety Report 6862647-2 (Version None)
Quarter: 2010Q3

REPORT INFORMATION
  Report Type: 
  Country: None (occurrence: None)
  Receive Date: 20100716
  Receipt Date: 20100702
  Transmission Date: 20110219
  Serious: Yes (Hospitalization)
  Sender: FDA-Public Use
  Company Number: 1000015019

PATIENT
  Age: 87 Year
  Sex: Female

DRUGS (4)
  1. CITALOPRAM HYDROBROMIDE [Suspect]
     Dosage: ORAL
     Route: 048
  2. NOROXIN [Suspect]
     Indication: URINARY TRACT INFECTION
     Dosage: 2 DOSAGE FORMS (1 DOSAGE FORMS, 2 IN 1 D), ORAL
     Route: 048
     Dates: start: 20091113, end: 20091118
  3. LEXOMIL [Suspect]
     Dosage: ORAL
  4. SPECIAFOLDINE [Concomitant]

REACTIONS (5)
  - APHASIA [None]
  - CONFUSIONAL STATE [None]
  - HALLUCINATION, VISUAL [None]
  - PETIT MAL EPILEPSY [None]
  - TRISMUS [None]
